FAERS Safety Report 17896411 (Version 1)
Quarter: 2020Q2

REPORT INFORMATION
  Report Type: Spontaneous
  Country: US (occurrence: US)
  Receive Date: 20200615
  Receipt Date: 20200615
  Transmission Date: 20200714
  Serious: Yes (Hospitalization, Other)
  Sender: FDA-Public Use
  Company Number: US-SA-2020SA139573

PATIENT

DRUGS (3)
  1. OLANZAPINE. [Suspect]
     Active Substance: OLANZAPINE
     Indication: BEHAVIOURAL THERAPY
     Dosage: 5 MG, QD
     Route: 065
  2. DIPHENHYDRAMINE. [Suspect]
     Active Substance: DIPHENHYDRAMINE
     Indication: DEMENTIA
     Dosage: 25 MG, TOTAL
     Route: 042
  3. OLANZAPINE. [Suspect]
     Active Substance: OLANZAPINE
     Indication: DEMENTIA

REACTIONS (9)
  - Musculoskeletal stiffness [Recovered/Resolved]
  - Mental status changes [Recovered/Resolved]
  - Jaw disorder [Recovered/Resolved]
  - Extrapyramidal disorder [Recovered/Resolved]
  - Facial paralysis [Recovered/Resolved]
  - Tremor [Recovered/Resolved]
  - Dystonia [Recovered/Resolved]
  - Pyrexia [Recovered/Resolved]
  - Delirium [Unknown]
